FAERS Safety Report 13869324 (Version 4)
Quarter: 2018Q1

REPORT INFORMATION
  Report Type: Report from Study
  Country: US (occurrence: US)
  Receive Date: 20170815
  Receipt Date: 20180322
  Transmission Date: 20180508
  Serious: Yes (Hospitalization)
  Sender: FDA-Public Use
  Company Number: US-EISAI MEDICAL RESEARCH-EC-2017-030299

PATIENT
  Age: 62 Year
  Sex: Female
  Weight: 60 kg

DRUGS (15)
  1. LENVIMA [Suspect]
     Active Substance: LENVATINIB
     Indication: RENAL CANCER
     Route: 048
     Dates: start: 20170803, end: 20170808
  2. LENVIMA [Suspect]
     Active Substance: LENVATINIB
     Route: 048
     Dates: end: 20180302
  3. VITAMINS [Concomitant]
     Active Substance: VITAMINS
  4. FOLIC ACID. [Concomitant]
     Active Substance: FOLIC ACID
  5. HYDRALAZINE [Concomitant]
     Active Substance: HYDRALAZINE HYDROCHLORIDE
  6. COQ10 [Concomitant]
     Active Substance: UBIDECARENONE
  7. LENVIMA [Suspect]
     Active Substance: LENVATINIB
     Route: 048
     Dates: start: 201803
  8. LISINOPRIL. [Suspect]
     Active Substance: LISINOPRIL
     Indication: BLOOD PRESSURE INCREASED
     Dosage: UNKNOWN
     Route: 048
     Dates: start: 201708
  9. BIOTIN [Concomitant]
     Active Substance: BIOTIN
  10. PERCOCET [Concomitant]
     Active Substance: ACETAMINOPHEN\OXYCODONE HYDROCHLORIDE
  11. PRILOSEC [Concomitant]
     Active Substance: OMEPRAZOLE MAGNESIUM
  12. VITAMIN B12 [Concomitant]
     Active Substance: CYANOCOBALAMIN
  13. ASA [Concomitant]
     Active Substance: ASPIRIN
  14. CABOMETYX [Concomitant]
     Active Substance: CABOZANTINIB S-MALATE
  15. AFINITOR [Concomitant]
     Active Substance: EVEROLIMUS

REACTIONS (12)
  - Diarrhoea [Unknown]
  - Nausea [Unknown]
  - Abdominal pain upper [Unknown]
  - Nodule [Recovered/Resolved]
  - Back pain [Unknown]
  - Urinary tract infection [Unknown]
  - Vomiting [Unknown]
  - Pulmonary oedema [Unknown]
  - Blood pressure decreased [Unknown]
  - Headache [Unknown]
  - Blood pressure increased [Unknown]
  - Haemoglobin decreased [Unknown]

NARRATIVE: CASE EVENT DATE: 201708
